FAERS Safety Report 5468763-4 (Version None)
Quarter: 2007Q3

REPORT INFORMATION
  Report Type: 
  Country: None (occurrence: None)
  Receive Date: 20070820
  Receipt Date: 20070514
  Transmission Date: 20080115
  Serious: No
  Sender: FDA-Public Use
  Company Number: WAES 0704USA01607

PATIENT
  Age: 68 Year
  Sex: Male
  Weight: 94.3482 kg

DRUGS (9)
  1. JANUVIA [Suspect]
     Indication: DIABETES MELLITUS
     Dosage: 100 MG/DAILY/PO
     Route: 048
     Dates: start: 20061207, end: 20070417
  2. DIOVAN [Concomitant]
  3. HUMALOG [Concomitant]
  4. LANTUS [Concomitant]
  5. LEVEMIR [Concomitant]
  6. OMNICEF [Concomitant]
  7. BENAZEPRIL HYDROCHLORIDE [Concomitant]
  8. METFORMIN [Concomitant]
  9. SIMVASTATIN [Concomitant]

REACTIONS (9)
  - BLOOD GLUCOSE INCREASED [None]
  - DRUG INEFFECTIVE [None]
  - EAR INFECTION [None]
  - EYE INFECTION [None]
  - HYPERSENSITIVITY [None]
  - NASAL CONGESTION [None]
  - NASOPHARYNGITIS [None]
  - PHARYNGOLARYNGEAL PAIN [None]
  - SINUSITIS [None]
